FAERS Safety Report 24645765 (Version 6)
Quarter: 2025Q2

REPORT INFORMATION
  Report Type: Report from Study
  Country: US (occurrence: US)
  Receive Date: 20241121
  Receipt Date: 20250506
  Transmission Date: 20250717
  Serious: Yes (Hospitalization, Other)
  Sender: UCB
  Company Number: US-UCBSA-2024059986

PATIENT
  Age: 24 Year
  Sex: Male
  Weight: 85 kg

DRUGS (3)
  1. FINTEPLA [Suspect]
     Active Substance: FENFLURAMINE
     Indication: Lennox-Gastaut syndrome
     Dosage: 22.2 MILLIGRAM, ONCE DAILY (QD)
     Dates: start: 20230414
  2. FINTEPLA [Suspect]
     Active Substance: FENFLURAMINE
     Indication: Seizure
     Dosage: 5 MILLILITER, 2X/DAY (BID)
  3. FINTEPLA [Suspect]
     Active Substance: FENFLURAMINE
     Dates: start: 20230703

REACTIONS (5)
  - Tricuspid valve incompetence [Not Recovered/Not Resolved]
  - Pneumonia [Recovered/Resolved]
  - Behaviour disorder [Not Recovered/Not Resolved]
  - Anxiety [Unknown]
  - Agitation [Unknown]

NARRATIVE: CASE EVENT DATE: 20241108
